FAERS Safety Report 11897484 (Version 1)
Quarter: 2016Q1

REPORT INFORMATION
  Report Type: Spontaneous
  Country: US (occurrence: US)
  Receive Date: 20160108
  Receipt Date: 20160108
  Transmission Date: 20160526
  Serious: No
  Sender: FDA-Public Use
  Company Number: US-DRREDDYS-USA/USA/15/0052783

PATIENT
  Age: 61 Year
  Sex: Male

DRUGS (1)
  1. CONTROL STEP 1 21MG [Suspect]
     Active Substance: NICOTINE
     Indication: SMOKING CESSATION THERAPY
     Dosage: 21 MG, UNK
     Route: 065
     Dates: start: 20140820, end: 20141209

REACTIONS (4)
  - Application site dryness [Not Recovered/Not Resolved]
  - Wrong technique in product usage process [Unknown]
  - Application site bruise [Not Recovered/Not Resolved]
  - Application site urticaria [Recovering/Resolving]

NARRATIVE: CASE EVENT DATE: 201408
